FAERS Safety Report 5340670-7 (Version None)
Quarter: 2007Q2

REPORT INFORMATION
  Report Type: 
  Country: None (occurrence: None)
  Receive Date: 20070405
  Receipt Date: 20061201
  Transmission Date: 20071010
  Serious: No
  Sender: FDA-Public Use
  Company Number: US200612000368

PATIENT
  Age: 44 Year
  Sex: Male

DRUGS (6)
  1. CYMBALTA [Suspect]
     Dosage: 60 MG, DAILY (1/D)
  2. FOLIC ACID [Concomitant]
  3. TRICOR [Concomitant]
  4. VITAMIN C (ASCROBIC ACID) [Concomitant]
  5. ASPIRIN [Concomitant]
  6. VITAMIN E [Concomitant]

REACTIONS (1)
  - DRUG SCREEN POSITIVE [None]
